FAERS Safety Report 4553353-8 (Version None)
Quarter: 2005Q1

REPORT INFORMATION
  Report Type: 
  Country: None (occurrence: None)
  Receive Date: 20050114
  Receipt Date: 20050106
  Transmission Date: 20050727
  Serious: Yes (Other)
  Sender: FDA-Public Use
  Company Number: US-ABBOTT-05P-163-0285854-00

PATIENT
  Sex: Female
  Weight: 136 kg

DRUGS (4)
  1. HUMIRA [Suspect]
     Indication: RHEUMATOID ARTHRITIS
     Route: 058
     Dates: start: 20040101, end: 20050101
  2. BUCINDOLOL HYDROCHLORIDE [Concomitant]
     Indication: PAIN
     Route: 048
     Dates: start: 20040101
  3. OXYCOCET [Concomitant]
     Indication: PAIN
     Route: 048
     Dates: start: 20040101
  4. METHOTREXATE SODIUM [Concomitant]
     Indication: RHEUMATOID ARTHRITIS
     Route: 048
     Dates: start: 20040101

REACTIONS (4)
  - PHARYNGITIS [None]
  - SINUSITIS [None]
  - UTERINE HAEMORRHAGE [None]
  - UTERINE POLYP [None]
